FAERS Safety Report 8219877-7 (Version None)
Quarter: 2012Q1

REPORT INFORMATION
  Report Type: 
  Country: None (occurrence: None)
  Receive Date: 20120319
  Receipt Date: 20120314
  Transmission Date: 20120608
  Serious: Yes (Hospitalization)
  Sender: FDA-Public Use
  Company Number: AU-PFIZER INC-2012063736

PATIENT
  Age: 40 Year
  Sex: Female
  Weight: 65.9 kg

DRUGS (14)
  1. LEXAPRO [Suspect]
     Indication: DEPRESSION
     Dosage: 20 MG, DAILY
     Route: 048
     Dates: start: 20110101
  2. BLINDED PLACEBO [Suspect]
     Indication: SMOKING CESSATION THERAPY
     Dosage: UNK MG, 1X/DAY
     Route: 048
     Dates: start: 20120203, end: 20120205
  3. VARENICLINE TARTRATE [Suspect]
     Indication: SMOKING CESSATION THERAPY
     Dosage: UNK MG, 1X/DAY
     Route: 048
     Dates: start: 20120203, end: 20120205
  4. BLINDED PLACEBO [Suspect]
     Dosage: UNK MG, 2X/DAY
     Route: 048
     Dates: start: 20120206, end: 20120209
  5. BLINDED NO SUBJECT DRUG [Suspect]
     Dosage: UNK MG, 2X/DAY
     Route: 048
     Dates: start: 20120206, end: 20120209
  6. BLINDED NO SUBJECT DRUG [Suspect]
     Indication: SMOKING CESSATION THERAPY
     Dosage: UNK MG, 1X/DAY
     Route: 048
     Dates: start: 20120203, end: 20120205
  7. VARENICLINE TARTRATE [Suspect]
     Dosage: UNK MG, 2X/DAY
     Route: 048
     Dates: start: 20120206, end: 20120209
  8. VARENICLINE TARTRATE [Suspect]
     Dosage: UNK MG, 2X/DAY
     Route: 048
     Dates: start: 20120210
  9. DEPO-PROVERA [Suspect]
     Indication: CONTRACEPTION
     Dosage: UNK, EVERY 3 MONTHS
     Route: 030
     Dates: start: 20110301
  10. LEVOTHYROXINE SODIUM [Concomitant]
     Indication: HYPOTHYROIDISM
     Dosage: 50 MG, DAILY
     Route: 048
     Dates: start: 20110101
  11. ESOMEPRAZOLE [Concomitant]
     Indication: REFLUX GASTRITIS
     Dosage: 20 MG, AS NEEDED
     Route: 048
     Dates: start: 20120223, end: 20120226
  12. BLINDED NO SUBJECT DRUG [Suspect]
     Dosage: UNK MG, 2X/DAY
     Route: 048
     Dates: start: 20120210
  13. BLINDED PLACEBO [Suspect]
     Dosage: UNK MG, 2X/DAY
     Route: 048
     Dates: start: 20120210
  14. CYMBALTA [Suspect]
     Indication: LETHARGY
     Dosage: 30 MG, DAILY
     Route: 048
     Dates: start: 20120227

REACTIONS (1)
  - MIGRAINE [None]
